FAERS Safety Report 22311873 (Version 1)
Quarter: 2023Q2

REPORT INFORMATION
  Report Type: Spontaneous
  Country: GR (occurrence: GR)
  Receive Date: 20230512
  Receipt Date: 20230512
  Transmission Date: 20230722
  Serious: Yes (Other)
  Sender: FDA-Public Use
  Company Number: GR-002147023-NVSC2023GR097171

PATIENT
  Age: 41 Year
  Sex: Male

DRUGS (3)
  1. ELTROMBOPAG OLAMINE [Suspect]
     Active Substance: ELTROMBOPAG OLAMINE
     Indication: Immune thrombocytopenia
     Dosage: UNK
     Route: 065
  2. ELTROMBOPAG OLAMINE [Suspect]
     Active Substance: ELTROMBOPAG OLAMINE
     Dosage: 50 MG
     Route: 048
     Dates: start: 202205, end: 202301
  3. PLAQUENIL [Concomitant]
     Active Substance: HYDROXYCHLOROQUINE SULFATE
     Indication: Product used for unknown indication
     Dosage: UNK
     Route: 065

REACTIONS (12)
  - Antiphospholipid syndrome [Unknown]
  - Thrombosis [Unknown]
  - Systemic lupus erythematosus [Unknown]
  - Autoimmune thyroiditis [Unknown]
  - Pain [Unknown]
  - Contusion [Unknown]
  - Peripheral swelling [Unknown]
  - Swelling [Recovering/Resolving]
  - Erythema [Recovering/Resolving]
  - Pain in extremity [Recovering/Resolving]
  - Inflammation [Recovering/Resolving]
  - Decreased immune responsiveness [Unknown]

NARRATIVE: CASE EVENT DATE: 20220901
